FAERS Safety Report 16395499 (Version 1)
Quarter: 2019Q2

REPORT INFORMATION
  Report Type: Spontaneous
  Country: GB (occurrence: GB)
  Receive Date: 20190605
  Receipt Date: 20190605
  Transmission Date: 20190711
  Serious: Yes (Hospitalization)
  Sender: FDA-Public Use
  Company Number: GB-ARRAY-2019-05696

PATIENT

DRUGS (2)
  1. MEKTOVI [Suspect]
     Active Substance: BINIMETINIB
     Indication: METASTATIC NEOPLASM
     Dosage: UNK
     Route: 048
  2. BRAFTOVI [Suspect]
     Active Substance: ENCORAFENIB
     Indication: METASTATIC NEOPLASM
     Dosage: UNK UNK, UNKNOWN
     Route: 048

REACTIONS (8)
  - Rash [Unknown]
  - Vomiting [Unknown]
  - Product use in unapproved indication [Unknown]
  - Fatigue [Unknown]
  - Urticaria [Unknown]
  - Pyrexia [Unknown]
  - Nausea [Unknown]
  - Dry skin [Unknown]
